FAERS Safety Report 10502126 (Version 3)
Quarter: 2014Q4

REPORT INFORMATION
  Report Type: Spontaneous
  Country: BR (occurrence: BR)
  Receive Date: 20141007
  Receipt Date: 20141118
  Transmission Date: 20150528
  Serious: Yes (Hospitalization, Other)
  Sender: FDA-Public Use
  Company Number: BR-PFIZER INC-2014272573

PATIENT
  Age: 80 Year
  Sex: Female

DRUGS (12)
  1. ACETYLSALICYLIC ACID [Concomitant]
     Active Substance: ASPIRIN
  2. SIMVASTATIN. [Concomitant]
     Active Substance: SIMVASTATIN
  3. OMEPRAZOLE. [Concomitant]
     Active Substance: OMEPRAZOLE
     Dosage: (WHEN FASTING)
  4. ISOSORBIDE MONONITRATE. [Concomitant]
     Active Substance: ISOSORBIDE MONONITRATE
     Indication: CARDIAC DISORDER
     Dosage: ONE TABLETS (20 MG), 2X/DAY (IN THE MORNING AND IN THE AFTERNOON)
  5. ASPIRINA PREVENT [Concomitant]
     Active Substance: ASPIRIN
  6. GLIFAGE [Concomitant]
     Active Substance: METFORMIN HYDROCHLORIDE
  7. OXYBUTYNIN HYDROCHLORIDE [Concomitant]
     Active Substance: OXYBUTYNIN CHLORIDE
  8. TORLOS [Concomitant]
     Indication: BLOOD PRESSURE ABNORMAL
     Dosage: UNK
  9. FELDENE [Suspect]
     Active Substance: PIROXICAM
     Indication: ARTHRALGIA
     Dosage: 20 MG, DAILY
     Dates: start: 1983
  10. CARVEDILOL. [Concomitant]
     Active Substance: CARVEDILOL
     Dosage: 2 TABLETS, DAILY
  11. NATRILIX SR [Concomitant]
     Active Substance: INDAPAMIDE
  12. GLUCOSAMINE HYDROCHLORIDE/GLUCOSAMINE SULFATE [Concomitant]
     Indication: OSTEOARTHRITIS

REACTIONS (10)
  - Blood glucose increased [Unknown]
  - Traumatic delivery [Unknown]
  - Cataract [Unknown]
  - Drug ineffective [Not Recovered/Not Resolved]
  - Bladder prolapse [Unknown]
  - Fall [Unknown]
  - Osteoarthritis [Unknown]
  - Leiomyoma [Unknown]
  - Myocardial infarction [Unknown]
  - Uterine prolapse [Unknown]

NARRATIVE: CASE EVENT DATE: 2003
